FAERS Safety Report 20516999 (Version 3)
Quarter: 2022Q2

REPORT INFORMATION
  Report Type: Spontaneous
  Country: BR (occurrence: BR)
  Receive Date: 20220225
  Receipt Date: 20220531
  Transmission Date: 20220720
  Serious: Yes (Life-Threatening, Hospitalization, Other)
  Sender: FDA-Public Use
  Company Number: BR-Melinta Therapeutics, LLC-BR-MLNT-22-00022

PATIENT
  Age: 57 Year
  Sex: Male
  Weight: 135 kg

DRUGS (4)
  1. DELAFLOXACIN [Suspect]
     Active Substance: DELAFLOXACIN
     Indication: Osteomyelitis
     Dosage: NOT PROVIDED.
     Route: 042
     Dates: start: 20220127, end: 20220208
  2. DELAFLOXACIN [Suspect]
     Active Substance: DELAFLOXACIN
     Indication: Diabetic foot
  3. CIPROFLOXACIN [Suspect]
     Active Substance: CIPROFLOXACIN
     Indication: Product used for unknown indication
     Dosage: NOT PROVIDED.
  4. CLINDAMYCIN [Suspect]
     Active Substance: CLINDAMYCIN
     Indication: Product used for unknown indication
     Dosage: NOT PROVIDED.

REACTIONS (4)
  - Myocardial infarction [Recovered/Resolved]
  - Pulmonary embolism [Unknown]
  - Coronary artery occlusion [Unknown]
  - Off label use [Unknown]

NARRATIVE: CASE EVENT DATE: 20220127
